FAERS Safety Report 23737644 (Version 3)
Quarter: 2025Q4

REPORT INFORMATION
  Report Type: Report from Study
  Country: US (occurrence: US)
  Receive Date: 20240412
  Receipt Date: 20251226
  Transmission Date: 20260118
  Serious: Yes (Other)
  Sender: PFIZER
  Company Number: US-PFIZER INC-PV202400048979

PATIENT
  Age: 56 Year
  Sex: Male

DRUGS (1)
  1. CIBINQO [Suspect]
     Active Substance: ABROCITINIB
     Indication: Dermatitis atopic
     Dosage: 100 MG, DAILY

REACTIONS (4)
  - Squamous cell carcinoma [Unknown]
  - Drug ineffective [Unknown]
  - Skin haemorrhage [Unknown]
  - Burning sensation [Unknown]
